FAERS Safety Report 8144828-3 (Version None)
Quarter: 2012Q1

REPORT INFORMATION
  Report Type: 
  Country: None (occurrence: None)
  Receive Date: 20120217
  Receipt Date: 20120207
  Transmission Date: 20120608
  Serious: Yes (Other)
  Sender: FDA-Public Use
  Company Number: US-GENZYME-FABR-1002354

PATIENT
  Sex: Female
  Weight: 69.8 kg

DRUGS (2)
  1. FABRAZYME [Suspect]
     Indication: FABRY'S DISEASE
     Dosage: 1 MG/KG, Q4W
     Route: 042
     Dates: start: 20110101
  2. FABRAZYME [Suspect]
     Dosage: 1 MG/KG, Q2W
     Route: 042

REACTIONS (1)
  - VENTRICULAR TACHYCARDIA [None]
